FAERS Safety Report 16826731 (Version 1)
Quarter: 2019Q3

REPORT INFORMATION
  Report Type: Spontaneous
  Country: US (occurrence: US)
  Receive Date: 20190919
  Receipt Date: 20190919
  Transmission Date: 20191005
  Serious: No
  Sender: FDA-Public Use
  Company Number: US-GLAXOSMITHKLINE-US2019AMR167028

PATIENT
  Sex: Female

DRUGS (2)
  1. REQUIP XL [Suspect]
     Active Substance: ROPINIROLE HYDROCHLORIDE
     Indication: PRODUCT USED FOR UNKNOWN INDICATION
     Dosage: 4 MG, QD, PRESCRIPTION STATED TO TAKE TWO 2MG TABLETS AT BEDTIME
     Route: 065
  2. REQUIP XL [Suspect]
     Active Substance: ROPINIROLE HYDROCHLORIDE
     Dosage: 2 MG, BID, TAKING 2MG AT LUNCH TIME AND 2MG AT BEDTIME
     Route: 065

REACTIONS (3)
  - Pain in extremity [Recovered/Resolved]
  - Product prescribing error [Unknown]
  - Inappropriate schedule of product administration [Unknown]
